FAERS Safety Report 24247910 (Version 2)
Quarter: 2024Q4

REPORT INFORMATION
  Report Type: Spontaneous
  Country: US (occurrence: US)
  Receive Date: 20240826
  Receipt Date: 20241003
  Transmission Date: 20250115
  Serious: No
  Sender: ROCHE
  Company Number: US-ROCHE-10000065275

PATIENT
  Sex: Female

DRUGS (2)
  1. OCREVUS [Suspect]
     Active Substance: OCRELIZUMAB
     Indication: Product used for unknown indication
     Route: 065
  2. XOLAIR [Suspect]
     Active Substance: OMALIZUMAB
     Indication: Product used for unknown indication
     Route: 058

REACTIONS (6)
  - Hot flush [Recovered/Resolved]
  - Vertigo [Recovered/Resolved]
  - Retching [Recovered/Resolved]
  - Blood pressure increased [Recovered/Resolved]
  - Throat irritation [Recovered/Resolved]
  - Feeling hot [Unknown]
